FAERS Safety Report 9353640 (Version 1)
Quarter: 2013Q2

REPORT INFORMATION
  Report Type: Spontaneous
  Country: US (occurrence: None)
  Receive Date: 20130612
  Receipt Date: 20130612
  Transmission Date: 20140414
  Serious: Yes (Other)
  Sender: FDA-Public Use
  Company Number: 2013P1006856

PATIENT
  Age: 77 Year
  Sex: Female
  Weight: 62.14 kg

DRUGS (2)
  1. LANOXIN [Suspect]
     Indication: ATRIAL FIBRILLATION
     Dosage: 0.25 MG; AM; PO
     Route: 048
  2. DEPAKOTE [Concomitant]

REACTIONS (3)
  - Malaise [None]
  - Atrial fibrillation [None]
  - Product substitution issue [None]
